FAERS Safety Report 23181268 (Version 2)
Quarter: 2023Q4

REPORT INFORMATION
  Report Type: Report from Study
  Country: CA (occurrence: CA)
  Receive Date: 20231114
  Receipt Date: 20231120
  Transmission Date: 20240110
  Serious: Yes (Hospitalization)
  Sender: FDA-Public Use
  Company Number: CA-ABBVIE-5490167

PATIENT
  Sex: Female

DRUGS (1)
  1. SKYRIZI [Suspect]
     Active Substance: RISANKIZUMAB-RZAA
     Indication: Crohn^s disease
     Dosage: LAST ADMIN DATE: 2023
     Route: 058
     Dates: start: 20230111

REACTIONS (10)
  - Shock [Unknown]
  - Infection [Unknown]
  - Peripheral vascular disorder [Unknown]
  - Musculoskeletal disorder [Unknown]
  - Joint swelling [Unknown]
  - Peripheral coldness [Unknown]
  - Contusion [Unknown]
  - Femur fracture [Unknown]
  - Skin laceration [Unknown]
  - Hypoaesthesia [Unknown]

NARRATIVE: CASE EVENT DATE: 20230101
